FAERS Safety Report 7169990-0 (Version None)
Quarter: 2010Q4

REPORT INFORMATION
  Report Type: 
  Country: None (occurrence: None)
  Receive Date: 20101217
  Receipt Date: 20101214
  Transmission Date: 20110411
  Serious: Yes (Death)
  Sender: FDA-Public Use
  Company Number: US-CUBIST-2010S1001781

PATIENT
  Age: 53 Year
  Sex: Female

DRUGS (6)
  1. CUBICIN [Suspect]
     Indication: BACTERAEMIA
     Route: 042
  2. VANCOMYCIN [Concomitant]
     Indication: ENDOPHTHALMITIS
  3. MOXIFLOXACIN [Concomitant]
     Indication: ENDOPHTHALMITIS
  4. FLUCONAZOLE [Concomitant]
     Indication: ENDOPHTHALMITIS
  5. LINEZOLID [Concomitant]
     Indication: PRODUCT USED FOR UNKNOWN INDICATION
  6. AMPHOTERICIN B [Concomitant]
     Indication: PRODUCT USED FOR UNKNOWN INDICATION

REACTIONS (1)
  - CARDIAC ARREST [None]
